FAERS Safety Report 18419959 (Version 1)
Quarter: 2020Q4

REPORT INFORMATION
  Report Type: Spontaneous
  Country: US (occurrence: US)
  Receive Date: 20201023
  Receipt Date: 20201023
  Transmission Date: 20210114
  Serious: Yes (Life-Threatening)
  Sender: FDA-Public Use
  Company Number: None

PATIENT
  Age: 60 Year
  Sex: Male

DRUGS (1)
  1. NIACIN XR 500 [Suspect]
     Active Substance: NIACIN
     Indication: BLOOD CHOLESTEROL

REACTIONS (5)
  - Oesophageal pain [None]
  - Product complaint [None]
  - Product substitution issue [None]
  - Product solubility abnormal [None]
  - Product residue present [None]
